FAERS Safety Report 19304559 (Version 3)
Quarter: 2021Q2

REPORT INFORMATION
  Report Type: Report from Study
  Country: HR (occurrence: HR)
  Receive Date: 20210525
  Receipt Date: 20210610
  Transmission Date: 20210717
  Serious: Yes (Hospitalization)
  Sender: FDA-Public Use
  Company Number: HR-ROCHE-2833899

PATIENT
  Age: 31 Year
  Sex: Male
  Weight: 89 kg

DRUGS (4)
  1. PARACETAMOL [Concomitant]
     Active Substance: ACETAMINOPHEN
     Indication: PREMEDICATION
     Dosage: SUBSEQUENT DOSES ON: 27/FEB/2019, 12/AUG/2019, 28/JAN/2020, 15/JUL/2020, 30/DEC/2020
     Route: 048
     Dates: start: 20190213, end: 20190213
  2. METHYLPREDNISOLONE. [Suspect]
     Active Substance: METHYLPREDNISOLONE
     Indication: PREMEDICATION
     Dosage: DOSE OF LAST METHYLPREDNISOLONE ADMINISTERED PRIOR TO THIS EVENT ONSET: 100 MG (ONCE IN 24 WEEKS)?SU
     Route: 042
     Dates: start: 20190213, end: 20190213
  3. CHLOROPYRAMINE [Concomitant]
     Active Substance: CHLOROPYRAMINE
     Indication: PREMEDICATION
     Dosage: SUBSEQUENT DOSES ON: 27/FEB/2019, 12/AUG/2019, 28/JAN/2020, 15/JUL/2020, 30/DEC/2020
     Route: 030
     Dates: start: 20190213, end: 20190213
  4. OCRELIZUMAB. [Suspect]
     Active Substance: OCRELIZUMAB
     Indication: RELAPSING-REMITTING MULTIPLE SCLEROSIS
     Dosage: DATE OF MOST RECENT DOSE OF OCRELIZUMAB PRIOR TO THIS EVENT ONSET: 30/DEC/2020 (600 MG) ONCE IN 24 W
     Route: 042
     Dates: start: 20190213

REACTIONS (1)
  - COVID-19 pneumonia [Recovered/Resolved]

NARRATIVE: CASE EVENT DATE: 20210411
